FAERS Safety Report 5142775-2 (Version None)
Quarter: 2006Q4

REPORT INFORMATION
  Report Type: 
  Country: None (occurrence: None)
  Receive Date: 20061027
  Receipt Date: 20061005
  Transmission Date: 20070319
  Serious: Yes (Hospitalization, Other)
  Sender: FDA-Public Use
  Company Number: US200606003784

PATIENT
  Age: 76 Year
  Sex: Female
  Weight: 84.8 kg

DRUGS (11)
  1. EVISTA [Suspect]
     Indication: OSTEOPENIA
     Dosage: 60 MG, DAILY (1/D), ORAL
     Route: 048
     Dates: start: 20031001
  2. LIPITOR [Concomitant]
  3. LISINOPRIL [Concomitant]
  4. NEXIUM [Concomitant]
  5. CALCIUM (CALCIUM) [Concomitant]
  6. CYANOCOBALAMIN [Concomitant]
  7. ZETIA [Concomitant]
  8. ASPIRIN [Concomitant]
  9. DITROPAN XL [Concomitant]
  10. AMOXIL [Concomitant]
  11. IMODIUM [Concomitant]

REACTIONS (5)
  - BREAST CANCER METASTATIC [None]
  - BREAST CELLULITIS [None]
  - BREAST INFECTION [None]
  - METASTASES TO LYMPH NODES [None]
  - POST PROCEDURAL COMPLICATION [None]
